FAERS Safety Report 5261506-9 (Version None)
Quarter: 2007Q1

REPORT INFORMATION
  Report Type: 
  Country: None (occurrence: None)
  Receive Date: 20070308
  Receipt Date: 20070219
  Transmission Date: 20070707
  Serious: Yes (Hospitalization)
  Sender: FDA-Public Use
  Company Number: 2007VX000785

PATIENT
  Age: 61 Year
  Sex: Female

DRUGS (2)
  1. INFERGEN [Suspect]
     Indication: HEPATITIS C
     Dosage: 15 UG; QD;SC
     Route: 058
     Dates: start: 20060410
  2. RIBAVIRIN [Concomitant]

REACTIONS (1)
  - BACK PAIN [None]
